FAERS Safety Report 8302684-4 (Version None)
Quarter: 2012Q2

REPORT INFORMATION
  Report Type: 
  Country: None (occurrence: None)
  Receive Date: 20120420
  Receipt Date: 20120409
  Transmission Date: 20120825
  Serious: Yes (Hospitalization)
  Sender: FDA-Public Use
  Company Number: JP-VERTEX PHARMACEUTICALS INC.-AE-2012-005291

PATIENT
  Sex: Female

DRUGS (21)
  1. VX-950 [Suspect]
     Indication: HEPATITIS C
     Route: 048
     Dates: start: 20120403, end: 20120407
  2. AMOBAN [Concomitant]
     Route: 048
     Dates: start: 20040512
  3. TRICHLORMETHIAZIDE [Concomitant]
     Route: 048
     Dates: start: 20040418
  4. METHADERM [Concomitant]
     Route: 061
     Dates: start: 20120406
  5. ZADITEN [Concomitant]
     Route: 048
     Dates: start: 20120406
  6. REBETOL [Concomitant]
     Route: 048
     Dates: start: 20120405, end: 20120406
  7. HIRUDOID [Concomitant]
     Route: 061
     Dates: start: 20120406
  8. SOLDEM [Concomitant]
     Dates: start: 20120407
  9. PEGINTERFERON ALFA-2B [Concomitant]
     Indication: HEPATITIS C
     Route: 051
     Dates: start: 20120403
  10. REBETOL [Concomitant]
     Indication: HEPATITIS C
     Route: 048
     Dates: start: 20120403, end: 20120404
  11. MIKELAN LA [Concomitant]
     Route: 031
     Dates: start: 20080619
  12. TAPROS [Concomitant]
     Route: 031
     Dates: start: 20120113
  13. PURSENNID [Concomitant]
     Route: 048
     Dates: start: 20120405
  14. OLMESARTAN MEDOXOMIL [Concomitant]
     Route: 048
     Dates: start: 20080418
  15. LOXONIN [Concomitant]
     Route: 048
     Dates: start: 20120403
  16. TALION [Concomitant]
     Route: 048
     Dates: start: 20120405
  17. ALLOPURINOL [Concomitant]
     Route: 048
     Dates: start: 20101119
  18. REBETOL [Concomitant]
     Route: 048
     Dates: start: 20120407, end: 20120409
  19. URSO 250 [Concomitant]
     Route: 048
     Dates: start: 20040709
  20. TOKISHAKUYAKUSAN [Concomitant]
     Route: 048
     Dates: start: 20110805
  21. EBASTINE [Concomitant]
     Route: 048
     Dates: start: 20120407

REACTIONS (1)
  - MALAISE [None]
